FAERS Safety Report 6417586-8 (Version None)
Quarter: 2009Q4

REPORT INFORMATION
  Report Type: 
  Country: None (occurrence: None)
  Receive Date: 20091028
  Receipt Date: 20091014
  Transmission Date: 20100525
  Serious: Yes (Death)
  Sender: FDA-Public Use
  Company Number: JP-ROCHE-663582

PATIENT
  Age: 16 Year
  Sex: Male

DRUGS (2)
  1. TAMIFLU [Suspect]
     Indication: INFLUENZA
     Route: 048
     Dates: start: 20091012, end: 20091013
  2. RELENZA [Concomitant]
     Dosage: DOSE FORM: INHALANT.  ROUTE: RESPIRATORY (INHALATION).
     Route: 055
     Dates: start: 20091012

REACTIONS (1)
  - ENCEPHALOPATHY [None]
